FAERS Safety Report 5440789-6 (Version None)
Quarter: 2007Q3

REPORT INFORMATION
  Report Type: 
  Country: None (occurrence: None)
  Receive Date: 20070831
  Receipt Date: 20070827
  Transmission Date: 20080115
  Serious: Yes (Other)
  Sender: FDA-Public Use
  Company Number: PHBS2007NL12272

PATIENT
  Age: 54 Year
  Sex: Female

DRUGS (6)
  1. NEORAL [Suspect]
     Indication: PSORIASIS
     Dosage: 125 MG, BID
     Route: 048
     Dates: start: 20060522, end: 20061009
  2. NEORAL [Suspect]
     Route: 048
     Dates: start: 20070717
  3. METHOTREXATE [Suspect]
     Indication: PSORIASIS
     Route: 065
     Dates: start: 20061009
  4. DOVOBET [Concomitant]
     Dosage: UNK, QD
     Dates: start: 20070307
  5. DERMOVATE [Concomitant]
     Dosage: UNK, BID
     Dates: start: 19930602
  6. PROTOPIC [Concomitant]
     Dates: start: 20061108

REACTIONS (4)
  - CORNEAL DYSTROPHY [None]
  - CORNEAL LESION [None]
  - KERATITIS [None]
  - VISUAL ACUITY REDUCED [None]
